FAERS Safety Report 8542002-X (Version None)
Quarter: 2012Q3

REPORT INFORMATION
  Report Type: 
  Country: None (occurrence: None)
  Receive Date: 20120726
  Receipt Date: 20110929
  Transmission Date: 20120928
  Serious: No
  Sender: FDA-Public Use
  Company Number: US-ASTRAZENECA-2011SE58839

PATIENT
  Age: 53 Year
  Sex: Female
  Weight: 59 kg

DRUGS (13)
  1. REMERON [Concomitant]
  2. ADVAIR DISKUS 100/50 [Concomitant]
  3. LUROTIN [Concomitant]
  4. SEROQUEL [Suspect]
     Indication: BIPOLAR DISORDER
     Route: 048
  5. SEROQUEL [Suspect]
     Indication: ANXIETY
     Route: 048
  6. SEROQUEL [Suspect]
     Indication: DEPRESSION
     Route: 048
  7. XANAX [Concomitant]
  8. SEROQUEL [Suspect]
     Route: 048
  9. SEROQUEL [Suspect]
     Route: 048
  10. LITHIUM CARBONATE [Concomitant]
  11. PAXIL [Concomitant]
  12. NEROTIN [Concomitant]
  13. SEROQUEL [Suspect]
     Route: 048

REACTIONS (6)
  - SOMNOLENCE [None]
  - EUPHORIC MOOD [None]
  - ACTIVITIES OF DAILY LIVING IMPAIRED [None]
  - FEELING ABNORMAL [None]
  - OFF LABEL USE [None]
  - MUSCLE SPASMS [None]
